FAERS Safety Report 15766920 (Version 3)
Quarter: 2019Q1

REPORT INFORMATION
  Report Type: Spontaneous
  Country: FR (occurrence: FR)
  Receive Date: 20181227
  Receipt Date: 20190122
  Transmission Date: 20190417
  Serious: Yes (Hospitalization, Other)
  Sender: FDA-Public Use
  Company Number: FR-MYLANLABS-2018M1096180

PATIENT
  Age: 67 Year
  Sex: Female
  Weight: 65 kg

DRUGS (4)
  1. BI PROFENID [Suspect]
     Active Substance: KETOPROFEN
     Indication: NEURALGIA
     Dosage: 100 MILLIGRAM, BID
     Route: 048
     Dates: start: 20181212, end: 201812
  2. PARIET [Concomitant]
     Active Substance: RABEPRAZOLE SODIUM
     Dosage: UNK
  3. XOLAAM [Concomitant]
     Active Substance: ALUMINUM HYDROXIDE\MAGNESIUM HYDROXIDE
     Dosage: UNK
  4. FONDAPARINUX [Suspect]
     Active Substance: FONDAPARINUX
     Indication: THROMBOSIS PROPHYLAXIS
     Dosage: UNK
     Route: 058
     Dates: start: 20181212, end: 20181215

REACTIONS (5)
  - Incorrect dose administered [Recovered/Resolved]
  - Synovial rupture [Recovered/Resolved]
  - Skin mass [Recovered/Resolved]
  - Haematoma [Recovered/Resolved]
  - Contusion [Recovered/Resolved]

NARRATIVE: CASE EVENT DATE: 20181212
